FAERS Safety Report 24905778 (Version 1)
Quarter: 2025Q1

REPORT INFORMATION
  Report Type: Spontaneous
  Country: EG (occurrence: EG)
  Receive Date: 20250130
  Receipt Date: 20250130
  Transmission Date: 20250409
  Serious: Yes (Hospitalization)
  Sender: PFIZER
  Company Number: EG-PFIZER INC-PV202500011149

PATIENT
  Age: 63 Year
  Sex: Female
  Weight: 95 kg

DRUGS (12)
  1. CLINDAMYCIN HYDROCHLORIDE [Suspect]
     Active Substance: CLINDAMYCIN HYDROCHLORIDE
     Indication: Iritis
     Dosage: 300 MG, 2X/DAY
     Route: 048
     Dates: start: 20250112, end: 20250112
  2. SULFAMETHOXAZOLE\TRIMETHOPRIM [Suspect]
     Active Substance: SULFAMETHOXAZOLE\TRIMETHOPRIM
     Indication: Iritis
     Dates: start: 20250112, end: 20250112
  3. ANTINAL [Concomitant]
  4. PHENIRAMINE MALEATE [Concomitant]
     Active Substance: PHENIRAMINE MALEATE
  5. EZAPRIL-CO [Concomitant]
  6. CLARITHROMYCIN [Concomitant]
     Active Substance: CLARITHROMYCIN
  7. OPTIPRED [PREDNISOLONE] [Concomitant]
  8. PAN AMIN G [Concomitant]
  9. PROTOFIX [Concomitant]
  10. VITAMINUM B COMP. [Concomitant]
  11. VONASPIRE [Concomitant]
  12. XITHRONE [Concomitant]

REACTIONS (11)
  - Dermatitis allergic [Recovered/Resolved]
  - Erythema [Recovered/Resolved]
  - Skin exfoliation [Recovered/Resolved]
  - Ulcer [Recovered/Resolved]
  - Skin discolouration [Recovered/Resolved]
  - Tachycardia [Recovered/Resolved]
  - Leukocytosis [Recovered/Resolved]
  - Pain [Recovered/Resolved]
  - Hyperglycaemia [Recovered/Resolved]
  - Oedema peripheral [Recovered/Resolved]
  - Off label use [Unknown]

NARRATIVE: CASE EVENT DATE: 20250112
